FAERS Safety Report 7915447-6 (Version None)
Quarter: 2011Q4

REPORT INFORMATION
  Report Type: 
  Country: None (occurrence: None)
  Receive Date: 20111115
  Receipt Date: 20111114
  Transmission Date: 20120403
  Serious: Yes (Other)
  Sender: FDA-Public Use
  Company Number: US-AMGEN-USASP2011052503

PATIENT
  Age: 59 Year
  Sex: Male
  Weight: 100 kg

DRUGS (3)
  1. NPLATE [Suspect]
     Indication: IDIOPATHIC THROMBOCYTOPENIC PURPURA
     Dosage: 1000 MUG, QWK
     Dates: start: 20110415, end: 20111004
  2. NORVASC [Concomitant]
  3. GLUCONATE SODIUM [Concomitant]

REACTIONS (2)
  - NON-NEUTRALISING ANTIBODIES POSITIVE [None]
  - DRUG INEFFECTIVE [None]
